FAERS Safety Report 8083684-9 (Version None)
Quarter: 2012Q1

REPORT INFORMATION
  Report Type: 
  Country: None (occurrence: None)
  Receive Date: 20120127
  Receipt Date: 20110122
  Transmission Date: 20120608
  Serious: No
  Sender: FDA-Public Use
  Company Number: US-ABBOTT-11P-163-0700088-00

PATIENT
  Age: 56 Year
  Sex: Female

DRUGS (8)
  1. HUMIRA [Suspect]
     Indication: CROHN'S DISEASE
     Dates: start: 20080901
  2. MIRTAZAPINE [Concomitant]
     Indication: ANXIETY
  3. PERCOCET [Concomitant]
     Indication: PRODUCT USED FOR UNKNOWN INDICATION
  4. BUSPIRONE HCL [Concomitant]
     Indication: ANXIETY
  5. MIRTAZAPINE [Concomitant]
     Indication: DEPRESSION
  6. LOMOTIL [Concomitant]
     Indication: DIARRHOEA
     Dosage: 2-3 X DAY
  7. FOSAMAX [Concomitant]
     Indication: PRODUCT USED FOR UNKNOWN INDICATION
  8. BUSPIRONE HCL [Concomitant]
     Indication: DEPRESSION

REACTIONS (4)
  - NASOPHARYNGITIS [None]
  - CROHN'S DISEASE [None]
  - DIARRHOEA [None]
  - INJECTION SITE PAIN [None]
